FAERS Safety Report 5132212-6 (Version None)
Quarter: 2006Q4

REPORT INFORMATION
  Report Type: 
  Country: None (occurrence: None)
  Receive Date: 20061017
  Receipt Date: 20061006
  Transmission Date: 20070319
  Serious: Yes (Hospitalization)
  Sender: FDA-Public Use
  Company Number: 163-21880-06100439

PATIENT
  Age: 65 Year
  Sex: Female
  Weight: 60.3284 kg

DRUGS (9)
  1. REVLIMID [Suspect]
     Indication: FOLLICULAR THYROID CANCER
     Dosage: 15 MG, DAILY, ORAL
     Route: 048
     Dates: start: 20060420
  2. SYNTHROID [Concomitant]
  3. TOPROL-XL [Concomitant]
  4. CALCITRIOL [Concomitant]
  5. TUMS (CALCIUM CARBONATE) [Concomitant]
  6. METOCLOPRAMIDE [Concomitant]
  7. STOOL SOFTNER [Concomitant]
  8. BACTRIM [Concomitant]
  9. CALCITRATE (CALCIUM) [Concomitant]

REACTIONS (3)
  - BACK PAIN [None]
  - DEHYDRATION [None]
  - OESOPHAGEAL STENOSIS [None]
